FAERS Safety Report 14382745 (Version 3)
Quarter: 2018Q1

REPORT INFORMATION
  Report Type: Spontaneous
  Country: JP (occurrence: JP)
  Receive Date: 20180112
  Receipt Date: 20180209
  Transmission Date: 20180509
  Serious: Yes (Death, Other)
  Sender: FDA-Public Use
  Company Number: JP-ROCHE-2054931

PATIENT
  Age: 62 Year
  Sex: Male
  Weight: 46 kg

DRUGS (15)
  1. ELPLAT [Concomitant]
     Active Substance: OXALIPLATIN
     Indication: COLON CANCER
     Dosage: DOSE INTERVAL UNCERTAINTY
     Route: 041
  2. 5-FU [Concomitant]
     Active Substance: FLUOROURACIL
     Dosage: DOSE INTERVAL UNCERTAINTY
     Route: 041
     Dates: start: 20170829, end: 20171130
  3. EMEND [Concomitant]
     Active Substance: APREPITANT
     Dosage: DOSAGE IS UNCERTAIN.
     Route: 048
  4. 5-FU [Concomitant]
     Active Substance: FLUOROURACIL
     Dosage: DOSE INTERVAL UNCERTAINTY
     Route: 041
  5. 5-FU [Concomitant]
     Active Substance: FLUOROURACIL
     Dosage: DOSE INTERVAL UNCERTAINTY
     Route: 040
     Dates: start: 20170829, end: 20171130
  6. AVASTIN [Suspect]
     Active Substance: BEVACIZUMAB
     Indication: COLON CANCER
     Route: 041
     Dates: start: 20170801, end: 20170801
  7. GRANISETRON [Concomitant]
     Active Substance: GRANISETRON
     Dosage: DOSAGE IS UNCERTAIN.
     Route: 065
  8. AVASTIN [Suspect]
     Active Substance: BEVACIZUMAB
     Route: 041
     Dates: start: 20170829, end: 20171130
  9. CALCIUM LEVOFOLINATE [Concomitant]
     Active Substance: LEVOLEUCOVORIN CALCIUM
     Indication: COLON CANCER
     Dosage: DOSE INTERVAL UNCERTAINTY
     Route: 041
  10. CALCIUM LEVOFOLINATE [Concomitant]
     Active Substance: LEVOLEUCOVORIN CALCIUM
     Dosage: DOSE INTERVAL UNCERTAINTY
     Route: 041
     Dates: start: 20170829, end: 20171130
  11. ELPLAT [Concomitant]
     Active Substance: OXALIPLATIN
     Dosage: DOSE INTERVAL UNCERTAINTY
     Route: 041
     Dates: start: 20170829, end: 20171130
  12. 5-FU [Concomitant]
     Active Substance: FLUOROURACIL
     Indication: COLON CANCER
     Dosage: DOSE INTERVAL UNCERTAINTY
     Route: 040
  13. DEXART [Concomitant]
     Active Substance: DEXAMETHASONE SODIUM PHOSPHATE
     Dosage: DOSAGE IS UNCERTAIN.
     Route: 065
  14. ALFALFA [Concomitant]
     Active Substance: ALFALFA
     Dosage: DOSAGE IS UNCERTAIN.
     Route: 065
  15. MAGNESIUM SULFATE. [Concomitant]
     Active Substance: MAGNESIUM SULFATE
     Dosage: DOSAGE IS UNCERTAIN.
     Route: 065

REACTIONS (8)
  - Decreased appetite [Unknown]
  - Malaise [Unknown]
  - Protein urine [Unknown]
  - Hypertension [Unknown]
  - Diarrhoea [Not Recovered/Not Resolved]
  - White blood cell count decreased [Unknown]
  - Skin discolouration [Unknown]
  - Neutropenia [Unknown]

NARRATIVE: CASE EVENT DATE: 201708
